FAERS Safety Report 21184970 (Version 1)
Quarter: 2022Q3

REPORT INFORMATION
  Report Type: Spontaneous
  Country: PT (occurrence: PT)
  Receive Date: 20220808
  Receipt Date: 20220808
  Transmission Date: 20221026
  Serious: Yes (Other)
  Sender: FDA-Public Use
  Company Number: None

PATIENT
  Age: 47 Year
  Sex: Female

DRUGS (2)
  1. SERTRALINE [Suspect]
     Active Substance: SERTRALINE HYDROCHLORIDE
     Indication: Dysarthria
     Dosage: 200 MG/DAY: 50+50+100
  2. SERTRALINE [Suspect]
     Active Substance: SERTRALINE HYDROCHLORIDE
     Indication: Dysarthria
     Dosage: 200 MG/DAY: 50+50+100

REACTIONS (7)
  - Drug dose titration not performed [Unknown]
  - Insomnia [Unknown]
  - Conversion disorder [Unknown]
  - Gait disturbance [Unknown]
  - Inappropriate affect [Unknown]
  - Anxiety [Unknown]
  - Irritability [Unknown]

NARRATIVE: CASE EVENT DATE: 20200901
